FAERS Safety Report 20207812 (Version 2)
Quarter: 2022Q1

REPORT INFORMATION
  Report Type: Spontaneous
  Country: CN (occurrence: CN)
  Receive Date: 20211220
  Receipt Date: 20220221
  Transmission Date: 20220424
  Serious: Yes (Other)
  Sender: FDA-Public Use
  Company Number: CN-NOVARTISPH-NVSC2021CN289973

PATIENT
  Age: 46 Year
  Sex: Male

DRUGS (3)
  1. SECUKINUMAB [Suspect]
     Active Substance: SECUKINUMAB
     Indication: Psoriasis
     Dosage: LOADING DOSES OF 300 MG, QW
     Route: 058
  2. SECUKINUMAB [Suspect]
     Active Substance: SECUKINUMAB
     Dosage: FOLLOWED BY 300 MG, QMO
     Route: 058
  3. SECUKINUMAB [Suspect]
     Active Substance: SECUKINUMAB
     Dosage: CONTINUED THE MAINTENANCE TREATMENT 300 MG, Q2MO (16 MONTHS AFTER SECUKINUMAB THERAPY)
     Route: 058

REACTIONS (1)
  - Multiple lentigines syndrome [Not Recovered/Not Resolved]
